FAERS Safety Report 8135449-7 (Version None)
Quarter: 2012Q1

REPORT INFORMATION
  Report Type: 
  Country: None (occurrence: None)
  Receive Date: 20120214
  Receipt Date: 20120213
  Transmission Date: 20120608
  Serious: Yes (Hospitalization, Other)
  Sender: FDA-Public Use
  Company Number: FR-JNJFOC-20120204805

PATIENT
  Age: 27 Year
  Sex: Female

DRUGS (37)
  1. DOXORUBICIN HCL [Suspect]
     Dosage: CYCLE 1 OF AI50 REGIMEN, ON DAY 1
     Route: 042
  2. DOXORUBICIN HCL [Suspect]
     Route: 040
  3. ETOPOSIDE [Concomitant]
     Route: 065
  4. DOXORUBICIN HCL [Suspect]
     Route: 042
  5. IFOSFAMIDE [Suspect]
     Route: 042
  6. IFOSFAMIDE [Suspect]
     Dosage: CYCLE 1 AI50 REGIMEN, CONTINUOUS OVER 48 HOURS (DAYS 1 AND 2)
     Route: 042
  7. IFOSFAMIDE [Suspect]
     Route: 042
  8. NEUPOGEN [Concomitant]
     Route: 065
  9. DOXORUBICIN HCL [Suspect]
     Route: 042
  10. DOXORUBICIN HCL [Suspect]
     Route: 040
  11. NEUPOGEN [Concomitant]
     Indication: PALLIATIVE CARE
     Route: 065
  12. ETOPOSIDE [Concomitant]
     Route: 065
  13. DOXORUBICIN HCL [Suspect]
     Route: 040
  14. NEUPOGEN [Concomitant]
     Route: 065
  15. DOXORUBICIN HCL [Suspect]
     Route: 040
  16. IFOSFAMIDE [Suspect]
     Route: 042
  17. IFOSFAMIDE [Suspect]
     Route: 042
  18. IFOSFAMIDE [Suspect]
     Route: 042
  19. DOXORUBICIN HCL [Suspect]
     Dosage: CYCLE 2, OF AI50 REGIMEN, ON DAY 1
     Route: 040
  20. IFOSFAMIDE [Suspect]
     Indication: SARCOMA
     Route: 042
  21. IFOSFAMIDE [Suspect]
     Route: 042
  22. METOCLOPRAMIDE [Concomitant]
     Indication: PROPHYLAXIS OF NAUSEA AND VOMITING
     Route: 042
  23. NEUPOGEN [Concomitant]
     Route: 065
  24. NEUPOGEN [Concomitant]
     Route: 065
  25. NEUPOGEN [Concomitant]
     Route: 065
  26. ETOPOSIDE [Concomitant]
     Indication: SARCOMA
     Route: 065
  27. DOXORUBICIN HCL [Suspect]
     Indication: SARCOMA
     Route: 042
  28. DOXORUBICIN HCL [Suspect]
     Route: 042
  29. DOXORUBICIN HCL [Suspect]
     Route: 042
  30. DOXORUBICIN HCL [Suspect]
     Dosage: CYCLE 2, OF AI50 REGIMEN, ON DAY 1
     Route: 042
  31. DOXORUBICIN HCL [Suspect]
     Route: 040
  32. DOXORUBICIN HCL [Suspect]
     Dosage: CYCLE 1 OF AI50 REGIMEN, ON DAY 1
     Route: 040
  33. IFOSFAMIDE [Suspect]
     Route: 042
  34. IFOSFAMIDE [Suspect]
     Dosage: CYCLE 2 OF AI50 REGIMEN, CONTINUOUS OVER 48 HOURS (DAYS 1 AND 2)
     Route: 042
  35. ONDANSETRON [Concomitant]
     Indication: PROPHYLAXIS OF NAUSEA AND VOMITING
     Route: 065
  36. NEUPOGEN [Concomitant]
     Route: 065
  37. NEUPOGEN [Concomitant]
     Route: 065

REACTIONS (4)
  - MATERNAL EXPOSURE DURING PREGNANCY [None]
  - NEUTROPENIA [None]
  - ALOPECIA [None]
  - PREMATURE DELIVERY [None]
